FAERS Safety Report 23703459 (Version 1)
Quarter: 2024Q2

REPORT INFORMATION
  Report Type: Spontaneous
  Country: JP (occurrence: JP)
  Receive Date: 20240403
  Receipt Date: 20240403
  Transmission Date: 20240716
  Serious: Yes (Hospitalization)
  Sender: FDA-Public Use
  Company Number: JP-Eisai-202315935_HAL_P_1

PATIENT
  Age: 40 Year
  Sex: Female
  Weight: 56 kg

DRUGS (2)
  1. HALAVEN [Suspect]
     Active Substance: ERIBULIN MESYLATE
     Indication: Breast cancer
     Route: 041
     Dates: start: 20231011, end: 20231011
  2. HALAVEN [Suspect]
     Active Substance: ERIBULIN MESYLATE
     Dosage: DOSE UNKNOWN
     Route: 041
     Dates: start: 20231102

REACTIONS (2)
  - Movement disorder [Unknown]
  - Febrile neutropenia [Recovered/Resolved]

NARRATIVE: CASE EVENT DATE: 20231012
